FAERS Safety Report 8196709-7 (Version None)
Quarter: 2012Q1

REPORT INFORMATION
  Report Type: 
  Country: None (occurrence: None)
  Receive Date: 20120309
  Receipt Date: 20120302
  Transmission Date: 20120608
  Serious: Yes (Death, Life-Threatening, Hospitalization, Other)
  Sender: FDA-Public Use
  Company Number: ES-CELGENEUS-144-50794-09041717

PATIENT
  Sex: Male
  Weight: 62 kg

DRUGS (15)
  1. BROMAZEPAM [Concomitant]
     Indication: ANXIETY
     Dosage: 1.5 MILLIGRAM
     Route: 065
     Dates: start: 20011215, end: 20090220
  2. MIRTAZAPINE [Concomitant]
     Indication: INSOMNIA
     Dosage: 15 MILLIGRAM
     Route: 065
     Dates: start: 20090220, end: 20090316
  3. QUETIAPINE [Concomitant]
     Indication: INSOMNIA
     Dosage: 50 MILLIGRAM
     Route: 065
     Dates: start: 20090227, end: 20090305
  4. IMMUNE GLOBULIN NOS [Concomitant]
     Indication: ARTHRITIS
     Route: 041
     Dates: start: 20080601, end: 20090316
  5. VIDAZA [Suspect]
     Route: 065
     Dates: start: 20090210, end: 20090218
  6. ACETAMINOPHEN [Concomitant]
     Dosage: 2000 MILLIGRAM
     Route: 065
     Dates: start: 20081222, end: 20090115
  7. PREDNISONE [Concomitant]
     Indication: OPTIC NEURITIS
     Route: 065
     Dates: start: 20090224, end: 20090228
  8. METFORMIN HCL [Concomitant]
     Indication: DIABETES MELLITUS
     Route: 065
     Dates: end: 20090219
  9. ZOLPIDEM [Concomitant]
     Indication: INSOMNIA
     Dosage: 10 MILLIGRAM
     Route: 065
     Dates: start: 20090223, end: 20090316
  10. ACYCLOVIR [Concomitant]
     Route: 065
     Dates: start: 20090204, end: 20090208
  11. TRIFLUSAL [Concomitant]
     Indication: OPTIC NEURITIS
     Route: 065
     Dates: end: 20081218
  12. HYDROXYUREA [Concomitant]
     Dates: start: 20081218, end: 20090115
  13. PANTOPRAZOLE [Concomitant]
     Dosage: 40 MILLIGRAM
     Route: 048
     Dates: start: 20090211, end: 20090312
  14. LORAZEPAM [Concomitant]
     Indication: INSOMNIA
     Dosage: 1 MILLIGRAM
     Route: 065
     Dates: start: 20090219, end: 20090316
  15. ENOXAPARIN [Concomitant]
     Indication: THROMBOSIS PROPHYLAXIS
     Route: 065
     Dates: start: 20090220, end: 20090315

REACTIONS (7)
  - GASTROINTESTINAL HAEMORRHAGE [None]
  - FEBRILE NEUTROPENIA [None]
  - HEPATIC FAILURE [None]
  - THROMBOCYTOPENIA [None]
  - NEUTROPENIA [None]
  - BRONCHITIS [None]
  - SEPSIS [None]
